FAERS Safety Report 6323435-9 (Version None)
Quarter: 2009Q3

REPORT INFORMATION
  Report Type: 
  Country: None (occurrence: None)
  Receive Date: 20090824
  Receipt Date: 20090402
  Transmission Date: 20100115
  Serious: No
  Sender: FDA-Public Use
  Company Number: US-ABBOTT-09P-163-0566381-00

PATIENT
  Sex: Male
  Weight: 81.72 kg

DRUGS (6)
  1. NIASPAN [Suspect]
     Indication: BLOOD CHOLESTEROL INCREASED
     Route: 048
     Dates: start: 20081001
  2. CIDEX [Concomitant]
     Indication: HIV INFECTION
  3. CELEBREX [Concomitant]
     Indication: ARTHRITIS
  4. VIRAMUNE [Concomitant]
     Indication: HIV INFECTION
  5. EPIVIR [Concomitant]
     Indication: HIV INFECTION
  6. ZIAGEN [Concomitant]
     Indication: HIV INFECTION

REACTIONS (4)
  - ERYTHEMA [None]
  - FEELING HOT [None]
  - FLUSHING [None]
  - PRURITUS [None]
